FAERS Safety Report 7489511-2 (Version None)
Quarter: 2011Q2

REPORT INFORMATION
  Report Type: 
  Country: None (occurrence: None)
  Receive Date: 20110519
  Receipt Date: 20110509
  Transmission Date: 20111010
  Serious: Yes (Other)
  Sender: FDA-Public Use
  Company Number: FR-BRISTOL-MYERS SQUIBB COMPANY-15740277

PATIENT
  Age: 55 Year
  Sex: Male

DRUGS (3)
  1. FLUOROURACIL [Suspect]
     Indication: HEAD AND NECK CANCER
     Dosage: MOST RECENT DOSE ON 14JAN2010
     Route: 042
     Dates: start: 20091221
  2. CARBOPLATIN [Suspect]
     Indication: HEAD AND NECK CANCER
     Dosage: MOST RECENT DOSE ON 14JAN2010
     Route: 042
     Dates: start: 20091221
  3. CETUXIMAB [Suspect]
     Indication: HEAD AND NECK CANCER
     Dosage: MOST RECENT DOSE ON 27JAN2010
     Route: 042
     Dates: start: 20091216

REACTIONS (2)
  - MUCOSAL INFLAMMATION [None]
  - DERMATITIS [None]
